FAERS Safety Report 15833473 (Version 2)
Quarter: 2019Q2

REPORT INFORMATION
  Report Type: Spontaneous
  Country: US (occurrence: US)
  Receive Date: 20190116
  Receipt Date: 20190628
  Transmission Date: 20190711
  Serious: Yes (Hospitalization, Disabling)
  Sender: FDA-Public Use
  Company Number: PHEH2019US002069

PATIENT
  Sex: Male
  Weight: 81.63 kg

DRUGS (1)
  1. COSENTYX [Suspect]
     Active Substance: SECUKINUMAB
     Indication: PSORIASIS
     Dosage: 300 MG, QMO
     Route: 058
     Dates: start: 201710, end: 201805

REACTIONS (9)
  - Diarrhoea [Unknown]
  - Colitis ulcerative [Recovered/Resolved]
  - Malaise [Unknown]
  - Abdominal pain [Unknown]
  - Irritable bowel syndrome [Recovering/Resolving]
  - Pyrexia [Unknown]
  - Incontinence [Unknown]
  - Lower gastrointestinal haemorrhage [Unknown]
  - Weight decreased [Unknown]
